FAERS Safety Report 8319391 (Version 4)
Quarter: 2013Q4

REPORT INFORMATION
  Report Type: Spontaneous
  Country: CN (occurrence: CN)
  Receive Date: 20120103
  Receipt Date: 20131204
  Transmission Date: 20140711
  Serious: Yes (Other)
  Sender: FDA-Public Use
  Company Number: PHHY2011CN113330

PATIENT
  Age: 58 Year
  Sex: Female
  Weight: 50 kg

DRUGS (9)
  1. DIOVAN [Suspect]
     Indication: HYPERTENSION
     Dosage: 80 MG IN THE MORNING INITIALLY
     Dates: start: 20090101
  2. DIOVAN [Suspect]
     Dosage: 80 MG IN THE NIGHT
     Dates: end: 20111223
  3. NIFEDIPINE [Concomitant]
     Indication: CORONARY ARTERY DISEASE
  4. NIFEDIPINE [Concomitant]
     Indication: HYPERTENSION
  5. ADALAT [Concomitant]
     Indication: CORONARY ARTERY DISEASE
     Dosage: 30 MG, IN THE MORNING
  6. ADALAT [Concomitant]
     Indication: HYPERTENSION
  7. BETALOC [Concomitant]
     Dosage: 12.5MG IN THE MORNING AND AT NIGHT
     Route: 048
     Dates: start: 201111
  8. ISOSORBIDE MONONITRATE [Concomitant]
     Indication: CORONARY ARTERY DISEASE
     Dosage: 20 MG, QD
     Dates: start: 2009
  9. ESTAZOLAM [Concomitant]
     Indication: INSOMNIA
     Dosage: 1 DF, IN THE NIGHT
     Dates: start: 2009

REACTIONS (5)
  - Angina pectoris [Not Recovered/Not Resolved]
  - Chest discomfort [Not Recovered/Not Resolved]
  - Musculoskeletal pain [Not Recovered/Not Resolved]
  - Hypoaesthesia [Not Recovered/Not Resolved]
  - Insomnia [Not Recovered/Not Resolved]
